FAERS Safety Report 10175192 (Version 3)
Quarter: 2014Q2

REPORT INFORMATION
  Report Type: Spontaneous
  Country: JP (occurrence: JP)
  Receive Date: 20140515
  Receipt Date: 20140528
  Transmission Date: 20141212
  Serious: Yes (Other)
  Sender: FDA-Public Use
  Company Number: JP-PFIZER INC-2014131006

PATIENT
  Age: 75 Year
  Sex: Male

DRUGS (9)
  1. LYRICA [Suspect]
     Dosage: 150 MG, DAILY
     Route: 048
  2. OLMETEC [Concomitant]
     Dosage: UNK
  3. PLAVIX [Concomitant]
     Dosage: UNK
  4. LANSOPRAZOL [Concomitant]
     Dosage: UNK
  5. DEPAS [Concomitant]
     Dosage: UNK
  6. TERNELIN [Concomitant]
     Dosage: UNK
  7. PURSENNID [Concomitant]
     Dosage: UNK
  8. SILECE [Concomitant]
     Dosage: UNK
  9. HALCION [Concomitant]
     Dosage: UNK

REACTIONS (4)
  - Ileus [Recovered/Resolved]
  - Nausea [Unknown]
  - Vomiting [Unknown]
  - Constipation [Recovered/Resolved]
